FAERS Safety Report 23820647 (Version 1)
Quarter: 2024Q2

REPORT INFORMATION
  Report Type: Spontaneous
  Country: CA (occurrence: None)
  Receive Date: 20240503
  Receipt Date: 20240503
  Transmission Date: 20240716
  Serious: Yes (Other)
  Sender: FDA-Public Use
  Company Number: None

PATIENT
  Age: 53 Year
  Sex: Male
  Weight: 94.5 kg

DRUGS (2)
  1. CLINDAMYCIN [Suspect]
     Active Substance: CLINDAMYCIN
     Indication: Tooth extraction
     Dates: start: 20240413, end: 20240420
  2. Adivan [Concomitant]

REACTIONS (6)
  - Rash erythematous [None]
  - Rash [None]
  - Urticaria [None]
  - Swelling face [None]
  - Dysphagia [None]
  - Dysphonia [None]

NARRATIVE: CASE EVENT DATE: 20240420
